FAERS Safety Report 10057305 (Version 1)
Quarter: 2014Q2

REPORT INFORMATION
  Report Type: Spontaneous
  Country: JP (occurrence: JP)
  Receive Date: 20140403
  Receipt Date: 20140403
  Transmission Date: 20141212
  Serious: Yes (Death)
  Sender: FDA-Public Use
  Company Number: JP-MPIJNJ-2014MPI000980

PATIENT
  Sex: 0

DRUGS (3)
  1. VELCADE [Suspect]
     Indication: WALDENSTROM^S MACROGLOBULINAEMIA
  2. DEXAMETHASONE [Suspect]
     Indication: WALDENSTROM^S MACROGLOBULINAEMIA
  3. RITUXIMAB [Concomitant]

REACTIONS (2)
  - Necrotising fasciitis [Fatal]
  - Off label use [None]
